FAERS Safety Report 18083866 (Version 6)
Quarter: 2020Q3

REPORT INFORMATION
  Report Type: Spontaneous
  Country: US (occurrence: US)
  Receive Date: 20200728
  Receipt Date: 20200916
  Transmission Date: 20201103
  Serious: Yes (Other)
  Sender: FDA-Public Use
  Company Number: US-ROCHE-2646519

PATIENT
  Sex: Female

DRUGS (4)
  1. XELODA [Suspect]
     Active Substance: CAPECITABINE
     Indication: BREAST CANCER FEMALE
     Route: 065
  2. HERCEPTIN [Suspect]
     Active Substance: TRASTUZUMAB
     Indication: BREAST CANCER FEMALE
     Route: 065
  3. BUPROPION. [Concomitant]
     Active Substance: BUPROPION
  4. LOPERAMIDE [Concomitant]
     Active Substance: LOPERAMIDE

REACTIONS (32)
  - Muscular weakness [Unknown]
  - Headache [Unknown]
  - Stress [Unknown]
  - Decreased appetite [Unknown]
  - Weight increased [Unknown]
  - Pruritus [Unknown]
  - Pain in extremity [Unknown]
  - Heart rate increased [Unknown]
  - Skin discolouration [Unknown]
  - Illness [Unknown]
  - Confusional state [Unknown]
  - Insomnia [Unknown]
  - Therapy change [Unknown]
  - Musculoskeletal stiffness [Unknown]
  - Brain oedema [Unknown]
  - Emotional disorder [Unknown]
  - Abdominal pain upper [Unknown]
  - Fatigue [Unknown]
  - Proctalgia [Unknown]
  - Tearfulness [Unknown]
  - Neck pain [Unknown]
  - Diarrhoea [Unknown]
  - Depression [Unknown]
  - Arthralgia [Unknown]
  - Hemiparesis [Unknown]
  - Renal pain [Unknown]
  - Tremor [Unknown]
  - Social problem [Unknown]
  - Memory impairment [Unknown]
  - Nail discolouration [Unknown]
  - Angina pectoris [Unknown]
  - Mass [Unknown]
